FAERS Safety Report 22162761 (Version 1)
Quarter: 2023Q1

REPORT INFORMATION
  Report Type: Spontaneous
  Country: ID (occurrence: None)
  Receive Date: 20230331
  Receipt Date: 20230331
  Transmission Date: 20230417
  Serious: Yes (Death, Other)
  Sender: FDA-Public Use
  Company Number: 2023A076166

PATIENT
  Age: 69 Year
  Sex: Female

DRUGS (1)
  1. DAPAGLIFLOZIN [Suspect]
     Active Substance: DAPAGLIFLOZIN
     Indication: Antiinflammatory therapy
     Dosage: 10.0MG UNKNOWN
     Route: 048

REACTIONS (2)
  - Glomerular filtration rate decreased [Fatal]
  - Off label use [Unknown]
